FAERS Safety Report 5199155-3 (Version None)
Quarter: 2006Q4

REPORT INFORMATION
  Report Type: 
  Country: None (occurrence: None)
  Receive Date: 20060919
  Receipt Date: 20060818
  Transmission Date: 20070319
  Serious: No
  Sender: FDA-Public Use
  Company Number: 2006US001901

PATIENT
  Age: 49 Year

DRUGS (1)
  1. VESICARE [Suspect]

REACTIONS (1)
  - DRUG INEFFECTIVE [None]
